FAERS Safety Report 6022548-9 (Version None)
Quarter: 2008Q4

REPORT INFORMATION
  Report Type: 
  Country: None (occurrence: None)
  Receive Date: 20081223
  Receipt Date: 20081219
  Transmission Date: 20090506
  Serious: Yes (Hospitalization)
  Sender: FDA-Public Use
  Company Number: DE-1167741

PATIENT
  Sex: Female

DRUGS (2)
  1. AZOPT [Suspect]
     Dosage: 1 GTT QD
     Dates: start: 20080726
  2. CORTISONE (CORTISONE) [Concomitant]

REACTIONS (10)
  - DYSGEUSIA [None]
  - DYSPNOEA [None]
  - ERYTHEMA OF EYELID [None]
  - EYE IRRITATION [None]
  - EYELID OEDEMA [None]
  - FOREIGN BODY SENSATION IN EYES [None]
  - MADAROSIS [None]
  - NAUSEA [None]
  - TACHYCARDIA [None]
  - VISUAL IMPAIRMENT [None]
